FAERS Safety Report 8964799 (Version 1)
Quarter: 2012Q4

REPORT INFORMATION
  Report Type: 
  Country: US (occurrence: US)
  Receive Date: 20121213
  Receipt Date: 20121213
  Transmission Date: 20130627
  Serious: Yes (Other)
  Sender: FDA-Public Use
  Company Number: US-ELI_LILLY_AND_COMPANY-US201207004747

PATIENT
  Age: 54 Year
  Sex: Female
  Weight: 61.68 kg

DRUGS (4)
  1. BYDUREON [Suspect]
     Indication: TYPE 2 DIABETES MELLITUS
     Dosage: 2 mg, weekly (1/W)
     Route: 058
     Dates: start: 20120620, end: 20120620
  2. ESTRADIOL [Concomitant]
     Dosage: 1 mg, qd
     Route: 048
  3. VESICARE [Concomitant]
     Indication: BLADDER DISORDER
     Dosage: 10 mg, qd
     Route: 048
  4. TRAMADOL [Concomitant]
     Indication: PAIN
     Dosage: UNK
     Route: 048

REACTIONS (10)
  - Dyspnoea [Recovering/Resolving]
  - Hypersensitivity [Recovering/Resolving]
  - Eye swelling [Recovering/Resolving]
  - Lip swelling [Recovering/Resolving]
  - Pain [Recovering/Resolving]
  - Erythema [Recovering/Resolving]
  - Burning sensation [Recovering/Resolving]
  - Dysphagia [Recovering/Resolving]
  - Rash pruritic [Recovering/Resolving]
  - Urticaria [Recovering/Resolving]
